FAERS Safety Report 8725336 (Version 3)
Quarter: 2012Q4

REPORT INFORMATION
  Report Type: Report from Study
  Country: DE (occurrence: NL)
  Receive Date: 20120815
  Receipt Date: 20120912
  Transmission Date: 20130627
  Serious: Yes (Death, Hospitalization)
  Sender: FDA-Public Use
  Company Number: DE-ACTELION-A-US2012-68109

PATIENT
  Age: 64 Year
  Sex: Male

DRUGS (11)
  1. VENTAVIS [Suspect]
     Indication: PULMONARY ARTERIAL HYPERTENSION
     Dosage: 5 ?g, q4hrs
     Route: 055
     Dates: start: 20120611
  2. METOPROLOL [Concomitant]
  3. CLOPIDOGREL [Concomitant]
  4. ACENOCOUMAROL [Concomitant]
  5. SPIRIVA [Concomitant]
  6. SPIRONOLACTON [Concomitant]
  7. LIPITOR [Concomitant]
  8. ACETYLSALICYLIC ACID ALUMINIUM [Concomitant]
  9. PANTOZAL [Concomitant]
  10. REVATIO [Concomitant]
  11. QUINAPRIL [Concomitant]

REACTIONS (9)
  - Cardiac arrest [Fatal]
  - Coronary artery stenosis [Unknown]
  - Chest pain [Unknown]
  - Angioplasty [Unknown]
  - Dyspnoea [Not Recovered/Not Resolved]
  - Oedema [Unknown]
  - Visual impairment [Unknown]
  - Eye pain [Unknown]
  - Headache [Unknown]
